FAERS Safety Report 10654048 (Version 1)
Quarter: 2014Q4

REPORT INFORMATION
  Report Type: Spontaneous
  Country: US (occurrence: None)
  Receive Date: 20141215
  Receipt Date: 20141215
  Transmission Date: 20150529
  Serious: Yes (Life-Threatening)
  Sender: FDA-Public Use
  Company Number: None

PATIENT
  Age: 49 Year
  Sex: Male
  Weight: 120.2 kg

DRUGS (1)
  1. RITUXAN [Suspect]
     Active Substance: RITUXIMAB
     Indication: LYMPHOMA
     Dosage: DATE OF USE: UNTIL DISEASE PROGRESSION, 1000MG, EVERY 3 WEEKS, INTRAVENOUS
     Route: 042

REACTIONS (2)
  - Chills [None]
  - Flushing [None]

NARRATIVE: CASE EVENT DATE: 20141211
